FAERS Safety Report 21358354 (Version 1)
Quarter: 2022Q3

REPORT INFORMATION
  Report Type: Spontaneous
  Country: CN (occurrence: CN)
  Receive Date: 20220921
  Receipt Date: 20220921
  Transmission Date: 20221027
  Serious: Yes (Life-Threatening)
  Sender: FDA-Public Use
  Company Number: CN-BoehringerIngelheim-2022-BI-192515

PATIENT
  Age: 75 Year
  Sex: Male
  Weight: 75 kg

DRUGS (11)
  1. ALTEPLASE [Suspect]
     Active Substance: ALTEPLASE
     Indication: Thrombolysis
     Dosage: INTRAVENOUSLY INJECTED WITHIN 1 MIN
     Route: 042
     Dates: start: 20220708, end: 20220708
  2. ALTEPLASE [Suspect]
     Active Substance: ALTEPLASE
     Dosage: INJECTION PUMPED THROMBOLYSIS WITHIN  1HOUR,
     Route: 042
     Dates: start: 20220708, end: 20220708
  3. TIROFIBAN HYDROCHLORIDE [Suspect]
     Active Substance: TIROFIBAN HYDROCHLORIDE
     Indication: Platelet aggregation inhibition
     Dosage: 1.8 ML/H WAS CONTINUOUSLY PUMPED
     Route: 042
     Dates: start: 20220708, end: 20220708
  4. UROKINASE [Suspect]
     Active Substance: UROKINASE
     Indication: Thrombolysis
     Dosage: THE UNIT OF UROKINASE FOR INJECTION: 10000 UNITS
     Route: 013
     Dates: start: 20220708, end: 20220708
  5. OXIRACETAM [Concomitant]
     Active Substance: OXIRACETAM
     Indication: Nervous system disorder prophylaxis
     Route: 042
     Dates: start: 20220708, end: 20220708
  6. URAPIDIL [Concomitant]
     Active Substance: URAPIDIL
     Indication: Hypertension
  7. REMIFENTANIL [Concomitant]
     Active Substance: REMIFENTANIL
     Indication: Pain
  8. REMIFENTANIL [Concomitant]
     Active Substance: REMIFENTANIL
     Indication: Sedation
  9. MIDAZOLAM [Concomitant]
     Active Substance: MIDAZOLAM
     Indication: Pain
  10. MIDAZOLAM [Concomitant]
     Active Substance: MIDAZOLAM
     Indication: Sedation
  11. MANNITOL [Concomitant]
     Active Substance: MANNITOL
     Indication: Dehydration

REACTIONS (2)
  - Cerebral haemorrhage [Not Recovered/Not Resolved]
  - Brain herniation [Not Recovered/Not Resolved]

NARRATIVE: CASE EVENT DATE: 20220708
